FAERS Safety Report 6110149-3 (Version None)
Quarter: 2009Q1

REPORT INFORMATION
  Report Type: 
  Country: None (occurrence: None)
  Receive Date: 20090306
  Receipt Date: 20090306
  Transmission Date: 20090719
  Serious: Yes (Other)
  Sender: FDA-Public Use
  Company Number: None

PATIENT
  Age: 41 Year
  Sex: Female
  Weight: 98.8842 kg

DRUGS (1)
  1. FENTANYL-100 [Suspect]
     Indication: PAIN IN EXTREMITY
     Dosage: 100 MCG EVERY 2 1/2 DAYS TRANSDERMAL
     Route: 062
     Dates: start: 20080101, end: 20090305

REACTIONS (3)
  - APPLICATION SITE BURN [None]
  - APPLICATION SITE REACTION [None]
  - HYPERHIDROSIS [None]
